FAERS Safety Report 11273789 (Version 1)
Quarter: 2015Q3

REPORT INFORMATION
  Report Type: Spontaneous
  Country: US (occurrence: US)
  Receive Date: 20150715
  Receipt Date: 20150715
  Transmission Date: 20151125
  Serious: No
  Sender: FDA-Public Use
  Company Number: US-ENDO PHARMACEUTICALS INC.-201502094

PATIENT
  Age: 74 Year
  Sex: Male
  Weight: 90.8 kg

DRUGS (4)
  1. EDEX [Suspect]
     Active Substance: ALPROSTADIL
     Route: 017
  2. TERAZOSIN [Concomitant]
     Active Substance: TERAZOSIN\TERAZOSIN HYDROCHLORIDE
  3. HYDROCHLOROTHIAZIDE. [Concomitant]
     Active Substance: HYDROCHLOROTHIAZIDE
  4. FINASTERIDE. [Concomitant]
     Active Substance: FINASTERIDE

REACTIONS (2)
  - Overdose [Not Recovered/Not Resolved]
  - Drug ineffective [Not Recovered/Not Resolved]
